FAERS Safety Report 7945993-0 (Version None)
Quarter: 2011Q4

REPORT INFORMATION
  Report Type: 
  Country: None (occurrence: None)
  Receive Date: 20111129
  Receipt Date: 20111117
  Transmission Date: 20120403
  Serious: Yes (Hospitalization, Other)
  Sender: FDA-Public Use
  Company Number: US-CELGENEUS-163-21880-11083492

PATIENT
  Sex: Male

DRUGS (12)
  1. BACTRIM [Concomitant]
     Route: 065
  2. DEXAMETHASONE [Suspect]
     Route: 065
  3. RESTORIL [Concomitant]
     Route: 065
  4. REVLIMID [Suspect]
     Dosage: 25 MILLIGRAM
     Route: 048
     Dates: start: 20110829, end: 20110904
  5. CELEXA [Concomitant]
     Route: 065
  6. COMPAZINE [Concomitant]
     Route: 065
  7. ASPIRIN [Concomitant]
     Route: 065
  8. ACYCLOVIR [Concomitant]
     Route: 065
  9. REVLIMID [Suspect]
     Indication: MULTIPLE MYELOMA
     Dosage: 25 MILLIGRAM
     Route: 048
     Dates: start: 20110810, end: 20110820
  10. AMLODIPINE [Concomitant]
     Route: 065
  11. LISINOPRIL [Concomitant]
     Route: 065
  12. SULFA [Suspect]
     Route: 065

REACTIONS (4)
  - PULMONARY EMBOLISM [None]
  - BLOOD URINE PRESENT [None]
  - RASH ERYTHEMATOUS [None]
  - RESPIRATORY ARREST [None]
